FAERS Safety Report 10010566 (Version 1)
Quarter: 2014Q1

REPORT INFORMATION
  Report Type: Spontaneous
  Country: US (occurrence: None)
  Receive Date: 20140312
  Receipt Date: 20140312
  Transmission Date: 20141002
  Serious: Yes (Other)
  Sender: FDA-Public Use
  Company Number: None

PATIENT
  Age: 85 Year
  Sex: Male
  Weight: 98 kg

DRUGS (2)
  1. CARBIDOPA/LEVODOPA [Suspect]
     Dosage: 1 TAB TID PO
     Route: 048
     Dates: start: 20130502
  2. WARFARIN [Suspect]
     Indication: ATRIAL FIBRILLATION
     Route: 048
     Dates: start: 20020101

REACTIONS (1)
  - International normalised ratio increased [None]
